FAERS Safety Report 5724665-7 (Version None)
Quarter: 2008Q2

REPORT INFORMATION
  Report Type: 
  Country: None (occurrence: None)
  Receive Date: 20080428
  Receipt Date: 20080414
  Transmission Date: 20081010
  Serious: Yes (Other)
  Sender: FDA-Public Use
  Company Number: 2008S1006426

PATIENT
  Age: 61 Year
  Sex: Male

DRUGS (9)
  1. WARFARIN SODIUM [Suspect]
     Indication: ATRIAL FIBRILLATION
     Dosage: 19 MG; ORAL
     Route: 048
     Dates: start: 20051101
  2. WARFARIN SODIUM [Suspect]
     Indication: CONGESTIVE CARDIOMYOPATHY
     Dosage: 19 MG; ORAL
     Route: 048
     Dates: start: 20051101
  3. BISOPROLOL FUMARATE [Concomitant]
  4. DIGOXIN [Concomitant]
  5. RAMIPRIL [Concomitant]
  6. SPIRONOLACTONE [Concomitant]
  7. UNKNOWN [Concomitant]
  8. UNKNOWN [Concomitant]
  9. UNKNOWN [Concomitant]

REACTIONS (1)
  - DRUG LEVEL BELOW THERAPEUTIC [None]
